FAERS Safety Report 4870911-1 (Version None)
Quarter: 2005Q4

REPORT INFORMATION
  Report Type: 
  Country: None (occurrence: None)
  Receive Date: 20051229
  Receipt Date: 20051216
  Transmission Date: 20060501
  Serious: Yes (Other)
  Sender: FDA-Public Use
  Company Number: 812#2#2005-00010

PATIENT
  Age: 57 Year
  Sex: Male

DRUGS (8)
  1. ISOSORBIDE MONONITRATE [Suspect]
     Dosage: 1,100 MG (50 MG 2 IN 1 DAY(S)) ORAL
     Route: 048
     Dates: start: 19960101
  2. OCVERSYL (PERINDOPRIL) [Concomitant]
  3. CARVEDILOL [Concomitant]
  4. OMEPRAZOLE MAGNESIUM (OMEPRAZOLE MAGNESIUM) [Concomitant]
  5. MIRTAZAPINE [Concomitant]
  6. THIORIDAZINE (THIORIDAZINE HYDROCHLORIDE) [Concomitant]
  7. SEROVENT (SALMETEROL XINAFOATE) [Concomitant]
  8. ATROVENT INHALATION FLUID (IPRATROPIUM BROMIDE) [Concomitant]

REACTIONS (3)
  - DIPLOPIA [None]
  - MUSCULAR WEAKNESS [None]
  - OEDEMA [None]
